FAERS Safety Report 5950799-8 (Version None)
Quarter: 2008Q4

REPORT INFORMATION
  Report Type: 
  Country: None (occurrence: None)
  Receive Date: 20081022
  Receipt Date: 20080814
  Transmission Date: 20090506
  Serious: No
  Sender: FDA-Public Use
  Company Number: ALL1-2008-02300

PATIENT

DRUGS (1)
  1. VYVANSE [Suspect]
     Indication: ATTENTION DEFICIT/HYPERACTIVITY DISORDER
     Dosage: 20 MG, 1X/DAY:QD, ORAL; HALF OF A 20MG CAPSULE,1X/DAY:QD,ORAL
     Route: 048

REACTIONS (2)
  - DRUG EFFECT INCREASED [None]
  - INCORRECT DOSE ADMINISTERED [None]
